FAERS Safety Report 6493496-5 (Version None)
Quarter: 2009Q4

REPORT INFORMATION
  Report Type: 
  Country: None (occurrence: None)
  Receive Date: 20091211
  Receipt Date: 20091211
  Transmission Date: 20100525
  Serious: No
  Sender: FDA-Public Use
  Company Number: None

PATIENT
  Age: 57 Year
  Sex: Male

DRUGS (1)
  1. AMANTADINE HCL [Suspect]
     Dosage: 200 MG BID PO
     Route: 048
     Dates: start: 20090108, end: 20090626

REACTIONS (2)
  - DELIRIUM [None]
  - HALLUCINATION [None]
